FAERS Safety Report 5810273-6 (Version None)
Quarter: 2008Q3

REPORT INFORMATION
  Report Type: 
  Country: None (occurrence: None)
  Receive Date: 20080715
  Receipt Date: 20080206
  Transmission Date: 20090109
  Serious: No
  Sender: FDA-Public Use
  Company Number: A0707840A

PATIENT
  Age: 45 Year
  Sex: Female

DRUGS (9)
  1. IMITREX [Suspect]
     Indication: MIGRAINE
     Dosage: 100MG AS REQUIRED
     Route: 048
     Dates: start: 20060601
  2. IMITREX [Suspect]
     Dosage: 50MG AS REQUIRED
     Route: 048
     Dates: start: 20060601
  3. FLEXERIL [Concomitant]
  4. AMITRIPTYLINE HCL [Concomitant]
  5. AMARYL [Concomitant]
  6. FIORICET [Concomitant]
  7. TOPAMAX [Concomitant]
  8. VYTORIN [Concomitant]
  9. FLUTICASONE PROPIONATE [Concomitant]

REACTIONS (4)
  - DRUG ADMINISTRATION ERROR [None]
  - DRUG INEFFECTIVE [None]
  - PHARMACEUTICAL PRODUCT COMPLAINT [None]
  - STOMACH DISCOMFORT [None]
